FAERS Safety Report 10197462 (Version 1)
Quarter: 2014Q2

REPORT INFORMATION
  Report Type: Report from Study
  Country: CH (occurrence: CH)
  Receive Date: 20140527
  Receipt Date: 20140527
  Transmission Date: 20141212
  Serious: Yes (Other)
  Sender: FDA-Public Use
  Company Number: CH-BAYER-2014-076808

PATIENT
  Age: 47 Year
  Sex: Female

DRUGS (2)
  1. SORAFENIB (RAF KINASE INHIBITOR) [Suspect]
     Indication: GLIOBLASTOMA
     Dosage: 400 MG, BID
     Route: 048
  2. TEMOZOLOMIDE [Suspect]
     Indication: GLIOBLASTOMA
     Dosage: DAILY DOSE 75 MG/M2

REACTIONS (2)
  - Hypercholesterolaemia [None]
  - Blood triglycerides increased [None]
